FAERS Safety Report 5924714-7 (Version None)
Quarter: 2008Q4

REPORT INFORMATION
  Report Type: 
  Country: None (occurrence: None)
  Receive Date: 20081016
  Receipt Date: 20080930
  Transmission Date: 20090506
  Serious: Yes (Hospitalization)
  Sender: FDA-Public Use
  Company Number: DSU-2008-01355

PATIENT
  Age: 70 Year
  Sex: Female

DRUGS (15)
  1. BENICAR [Suspect]
     Indication: DRUG USE FOR UNKNOWN INDICATION
     Dosage: 40 MG (40 MG,QD), PER ORAL
     Route: 048
     Dates: end: 20080601
  2. CALTRATE(CALCIUM CARBONATE) (CALCIUM CARBONATE) [Concomitant]
  3. VITAMIN C(ASCORBIC ACID) (ASCORBIC ACID) [Concomitant]
  4. SYNTHROID (LEVOTHYROXINE SODIUM) (LEVOTHYROXINE SODIUM) [Concomitant]
  5. METHOTREXATE [Concomitant]
  6. VYTORIN [Concomitant]
  7. BONIVA(IBANDRONATE SODIUM) (IBANDRONATE SODIUM) [Concomitant]
  8. LEXAPRO (ESCITALOPRAM OXALATE) (ESCITALOPRAM OXALATE) [Concomitant]
  9. FEXOFENADINE (FEXOFENADINE) (FEXOFENADINE) [Concomitant]
  10. ADVAIR (FLUTICASONE PROPIONATE, SALMETEROL XINAFOATE) (FLUTICASONE PRO [Concomitant]
  11. PRILOSEC (OMEPRAZOLE) ( OMEPRAZOLE) [Concomitant]
  12. HYDROCODONE (HYDROCODONE) (HYDROCODONE) [Concomitant]
  13. PREDNISONE (PREDNISONE) (PREDINSONE) [Concomitant]
  14. FOLIC ACID (FOLIC ACID) (FOLIC ACID) [Concomitant]
  15. COZAAR (LOSARTAN POTASSIUM) (LOSARTAN POTASSIUM) [Concomitant]

REACTIONS (6)
  - ASTHENIA [None]
  - DEHYDRATION [None]
  - RENAL FAILURE ACUTE [None]
  - SNEEZING [None]
  - VIRAL INFECTION [None]
  - VOMITING [None]
